FAERS Safety Report 5830920-2 (Version None)
Quarter: 2008Q3

REPORT INFORMATION
  Report Type: 
  Country: None (occurrence: None)
  Receive Date: 20080801
  Receipt Date: 20080204
  Transmission Date: 20090109
  Serious: No
  Sender: FDA-Public Use
  Company Number: US-BRISTOL-MYERS SQUIBB COMPANY-14063523

PATIENT
  Age: 81 Year
  Sex: Male
  Weight: 77 kg

DRUGS (1)
  1. COUMADIN [Suspect]
     Indication: HYPERTENSION
     Dosage: CURRENT DOSE SINCE 11JAN08 - 7MG DAILY.
     Route: 048
     Dates: start: 20071201

REACTIONS (1)
  - INTERNATIONAL NORMALISED RATIO FLUCTUATION [None]
